FAERS Safety Report 12932031 (Version 4)
Quarter: 2017Q4

REPORT INFORMATION
  Report Type: Report from Study
  Country: DE (occurrence: DE)
  Receive Date: 20161111
  Receipt Date: 20171026
  Transmission Date: 20180320
  Serious: Yes (Death, Hospitalization, Other)
  Sender: FDA-Public Use
  Company Number: PHHY2016DE142041

PATIENT
  Age: 77 Year
  Sex: Male
  Weight: 104 kg

DRUGS (5)
  1. ATMADISC [Concomitant]
     Active Substance: FLUTICASONE PROPIONATE\SALMETEROL XINAFOATE
     Indication: CHRONIC OBSTRUCTIVE PULMONARY DISEASE
     Dosage: 2 DF (1-0-1), QD
     Route: 065
  2. RENACOR [Concomitant]
     Indication: ATRIAL FIBRILLATION
     Dosage: 1 DF (1-0-0), QD
     Route: 065
  3. EXJADE [Suspect]
     Active Substance: DEFERASIROX
     Indication: MYELODYSPLASTIC SYNDROME
     Dosage: 9.6 MG/KG/DAY=2, (TABLETS A 1000 MG)
     Route: 048
     Dates: start: 20160630, end: 20160815
  4. AZACITIDINE. [Concomitant]
     Active Substance: AZACITIDINE
     Indication: PRODUCT USED FOR UNKNOWN INDICATION
     Dosage: 150 MG, UNK
     Route: 042
     Dates: start: 20140224
  5. MARCUMAR [Concomitant]
     Active Substance: PHENPROCOUMON
     Indication: ATRIAL FIBRILLATION
     Dosage: 2.5-3 ACC TARGET VALUE, UNK
     Route: 065

REACTIONS (4)
  - Polyneuropathy [Recovering/Resolving]
  - General physical health deterioration [Unknown]
  - Diverticulitis [Fatal]
  - Gait disturbance [Unknown]

NARRATIVE: CASE EVENT DATE: 201607
